FAERS Safety Report 5014755-9 (Version None)
Quarter: 2006Q2

REPORT INFORMATION
  Report Type: 
  Country: None (occurrence: None)
  Receive Date: 20060531
  Receipt Date: 20060525
  Transmission Date: 20061013
  Serious: Yes (Other)
  Sender: FDA-Public Use
  Company Number: GB-BRISTOL-MYERS SQUIBB COMPANY-13389739

PATIENT
  Age: 73 Year
  Sex: Male

DRUGS (6)
  1. LISINOPRIL [Suspect]
  2. WARFARIN SODIUM [Suspect]
  3. DIGOXIN [Suspect]
  4. FUROSEMIDE [Suspect]
  5. SIMVASTATIN [Suspect]
  6. SPIRONOLACTONE [Suspect]

REACTIONS (1)
  - CARDIAC FAILURE [None]
